FAERS Safety Report 9314356 (Version 1)
Quarter: 2013Q2

REPORT INFORMATION
  Report Type: Spontaneous
  Country: JP (occurrence: JP)
  Receive Date: 20130529
  Receipt Date: 20130529
  Transmission Date: 20140414
  Serious: Yes (Hospitalization)
  Sender: FDA-Public Use
  Company Number: JP-SANOFI-AVENTIS-2013SA037674

PATIENT
  Sex: Female

DRUGS (7)
  1. ALLEGRA [Suspect]
     Indication: RASH
     Route: 048
     Dates: start: 20130331, end: 20130401
  2. ALLEGRA [Suspect]
     Indication: ERYTHEMA
     Route: 048
     Dates: start: 20130331, end: 20130401
  3. BLOPRESS [Concomitant]
  4. LIPITOR [Concomitant]
     Route: 048
  5. OPALMON [Concomitant]
     Route: 048
  6. MAGMITT [Concomitant]
     Route: 048
  7. ZOSYN [Concomitant]
     Route: 041
     Dates: start: 20130318, end: 20130401

REACTIONS (2)
  - Hepatic function abnormal [Recovered/Resolved]
  - Pyrexia [Recovered/Resolved]
